FAERS Safety Report 8942140 (Version 2)
Quarter: 2012Q4

REPORT INFORMATION
  Report Type: 
  Country: PL (occurrence: PL)
  Receive Date: 20121130
  Receipt Date: 20121217
  Transmission Date: 20130627
  Serious: Yes (Other)
  Sender: FDA-Public Use
  Company Number: PL-GLAXOSMITHKLINE-B0848820A

PATIENT
  Age: 14 Month
  Sex: Male

DRUGS (1)
  1. ZINNAT [Suspect]
     Indication: BRONCHITIS
     Route: 048
     Dates: start: 20121119

REACTIONS (6)
  - Pneumonia [Not Recovered/Not Resolved]
  - Vomiting [Not Recovered/Not Resolved]
  - Diarrhoea [Not Recovered/Not Resolved]
  - Pyrexia [Unknown]
  - Drug ineffective [Unknown]
  - Product quality issue [Unknown]
